FAERS Safety Report 11841088 (Version 1)
Quarter: 2015Q4

REPORT INFORMATION
  Report Type: Spontaneous
  Country: US (occurrence: US)
  Receive Date: 20151216
  Receipt Date: 20151216
  Transmission Date: 20160305
  Serious: No
  Sender: FDA-Public Use
  Company Number: US-ASTRAZENECA-2015SF23242

PATIENT
  Sex: Female
  Weight: 59.9 kg

DRUGS (5)
  1. ATACAND [Suspect]
     Active Substance: CANDESARTAN CILEXETIL
     Dosage: 32 MG ONCE DAILY, GENERIC
     Route: 065
     Dates: start: 2014
  2. ATACAND [Suspect]
     Active Substance: CANDESARTAN CILEXETIL
     Route: 048
     Dates: start: 2005, end: 2014
  3. ATENOLOL. [Suspect]
     Active Substance: ATENOLOL
     Indication: PALPITATIONS
     Route: 065
  4. LEVOTHYROXINE. [Concomitant]
     Active Substance: LEVOTHYROXINE
     Indication: THYROID DISORDER
  5. ATORVASTATIN [Concomitant]
     Active Substance: ATORVASTATIN
     Indication: BLOOD CHOLESTEROL ABNORMAL

REACTIONS (2)
  - Ear pain [Unknown]
  - Ear disorder [Unknown]
